FAERS Safety Report 6813436-6 (Version None)
Quarter: 2010Q3

REPORT INFORMATION
  Report Type: 
  Country: None (occurrence: None)
  Receive Date: 20100701
  Receipt Date: 20100625
  Transmission Date: 20110219
  Serious: Yes (Hospitalization)
  Sender: FDA-Public Use
  Company Number: Z0001791B

PATIENT
  Sex: Male
  Weight: 67 kg

DRUGS (2)
  1. OFATUMUMAB [Suspect]
     Route: 042
     Dates: start: 20090910
  2. CHLORAMBUCIL [Suspect]
     Route: 048
     Dates: start: 20090910

REACTIONS (2)
  - HYDRONEPHROSIS [None]
  - RENAL COLIC [None]
